FAERS Safety Report 5535943-9 (Version None)
Quarter: 2007Q4

REPORT INFORMATION
  Report Type: 
  Country: None (occurrence: None)
  Receive Date: 20071206
  Receipt Date: 20070824
  Transmission Date: 20080405
  Serious: Yes (Other)
  Sender: FDA-Public Use
  Company Number: US-AMGEN-US240307

PATIENT
  Sex: Female

DRUGS (5)
  1. ENBREL [Suspect]
     Indication: RHEUMATOID ARTHRITIS
     Route: 058
     Dates: start: 19990901
  2. FORADIL [Concomitant]
  3. SYMBICORT [Concomitant]
  4. UNSPECIFIED MEDICATION [Concomitant]
  5. ANTIHYPERTENSIVE MEDICATION NOS [Concomitant]

REACTIONS (5)
  - BLOOD PRESSURE INCREASED [None]
  - MUSCLE SPASMS [None]
  - PALPITATIONS [None]
  - SYNOVIAL CYST [None]
  - THERAPEUTIC RESPONSE DECREASED [None]
